FAERS Safety Report 7498974-8 (Version None)
Quarter: 2011Q2

REPORT INFORMATION
  Report Type: 
  Country: None (occurrence: None)
  Receive Date: 20110524
  Receipt Date: 20110518
  Transmission Date: 20111010
  Serious: Yes (Other)
  Sender: FDA-Public Use
  Company Number: US-SANOFI-AVENTIS-2011SA031833

PATIENT
  Age: 60 Year
  Sex: Female

DRUGS (1)
  1. UROXATRAL [Suspect]
     Route: 048
     Dates: start: 20101117, end: 20101117

REACTIONS (7)
  - HYPOTENSION [None]
  - URINARY INCONTINENCE [None]
  - FEELING ABNORMAL [None]
  - LOSS OF CONSCIOUSNESS [None]
  - OFF LABEL USE [None]
  - EPILEPSY [None]
  - EYE MOVEMENT DISORDER [None]
